FAERS Safety Report 18940438 (Version 3)
Quarter: 2023Q1

REPORT INFORMATION
  Report Type: Spontaneous
  Country: US (occurrence: US)
  Receive Date: 20210225
  Receipt Date: 20230116
  Transmission Date: 20230418
  Serious: No
  Sender: FDA-Public Use
  Company Number: US-SA-SAC20210219000944

PATIENT
  Age: 56 Year
  Sex: Male

DRUGS (2)
  1. FABRAZYME [Suspect]
     Active Substance: AGALSIDASE BETA
     Indication: Fabry^s disease
     Dosage: 70 MG, QOW
     Route: 042
     Dates: start: 2018
  2. FABRAZYME [Suspect]
     Active Substance: AGALSIDASE BETA
     Dosage: 5 MG, QOW
     Route: 042
     Dates: start: 2018

REACTIONS (15)
  - Temperature intolerance [Unknown]
  - Flatulence [Unknown]
  - Proteinuria [Unknown]
  - Angiokeratoma [Unknown]
  - Exercise tolerance decreased [Unknown]
  - Mitral valve prolapse [Unknown]
  - Globotriaosylsphingosine increased [Unknown]
  - Somnolence [Unknown]
  - Formication [Unknown]
  - Burning sensation [Unknown]
  - Paraesthesia [Unknown]
  - Oedema peripheral [Unknown]
  - Hypertension [Unknown]
  - Fatigue [Unknown]
  - Drug specific antibody present [Unknown]

NARRATIVE: CASE EVENT DATE: 20210302
